FAERS Safety Report 8688656 (Version 3)
Quarter: 2012Q4

REPORT INFORMATION
  Report Type: 
  Country: DK (occurrence: ES)
  Receive Date: 20120727
  Receipt Date: 20121009
  Transmission Date: 20130627
  Serious: Yes (Hospitalization)
  Sender: FDA-Public Use
  Company Number: ES-FRI-1000037354

PATIENT
  Age: 79 Year
  Sex: Female

DRUGS (6)
  1. ESCITALOPRAM [Suspect]
     Indication: DEMENTIA ALZHEIMER^S TYPE
     Dosage: 10 mg
     Route: 048
     Dates: start: 201110
  2. ADIRO [Suspect]
     Indication: PROPHYLAXIS
     Dosage: 300 mg
     Route: 048
     Dates: start: 2007, end: 20111206
  3. PARACETAMOL [Concomitant]
     Indication: OSTEOARTHRITIS
     Dosage: 3000 mg
     Route: 048
     Dates: start: 201110, end: 20111206
  4. PRAVASTATIN [Concomitant]
     Indication: HYPERLIPIDAEMIA
     Dosage: 20 mg
     Route: 048
     Dates: start: 20110316, end: 20111206
  5. ENALAPRIL [Concomitant]
     Indication: HYPERTENSION
     Dosage: 5 mg
     Route: 048
     Dates: start: 2003
  6. ARICEPT / DONEPEZIL [Concomitant]
     Indication: DEMENTIA ALZHEIMER^S TYPE
     Dosage: 10 mg
     Route: 048
     Dates: start: 2007

REACTIONS (3)
  - Lower gastrointestinal haemorrhage [Recovered/Resolved]
  - Drug interaction [Recovered/Resolved]
  - Off label use [Unknown]
